FAERS Safety Report 10162776 (Version 2)
Quarter: 2014Q3

REPORT INFORMATION
  Report Type: Spontaneous
  Country: GB (occurrence: GB)
  Receive Date: 20140509
  Receipt Date: 20140807
  Transmission Date: 20150326
  Serious: Yes (Other)
  Sender: FDA-Public Use
  Company Number: GB-JNJFOC-20140420009

PATIENT
  Sex: Male

DRUGS (2)
  1. XEPLION [Suspect]
     Active Substance: PALIPERIDONE PALMITATE
     Indication: SCHIZOPHRENIA
     Route: 030
     Dates: start: 201201
  2. XEPLION [Suspect]
     Active Substance: PALIPERIDONE PALMITATE
     Indication: SCHIZOPHRENIA
     Route: 030

REACTIONS (12)
  - Alopecia [Unknown]
  - Pseudoparalysis [Unknown]
  - Injection site erythema [Unknown]
  - Paranoia [Unknown]
  - Hypoaesthesia [Unknown]
  - Tendon disorder [Unknown]
  - Malaise [Unknown]
  - Pain in extremity [Unknown]
  - Reaction to drug excipients [Unknown]
  - Liver disorder [Unknown]
  - Joint swelling [Unknown]
  - Musculoskeletal stiffness [Unknown]
